FAERS Safety Report 6229889-0 (Version None)
Quarter: 2009Q2

REPORT INFORMATION
  Report Type: 
  Country: None (occurrence: None)
  Receive Date: 20090615
  Receipt Date: 20090609
  Transmission Date: 20091009
  Serious: Yes (Hospitalization)
  Sender: FDA-Public Use
  Company Number: US-ELI_LILLY_AND_COMPANY-US200906002160

PATIENT
  Sex: Female

DRUGS (5)
  1. FORTEO [Suspect]
     Indication: OSTEOPOROSIS
     Dates: start: 20080801, end: 20090401
  2. FORTEO [Suspect]
     Dates: start: 20090501
  3. NORVASC [Concomitant]
  4. TOPROL-XL [Concomitant]
  5. VITAMIN D [Concomitant]

REACTIONS (2)
  - SPINAL DISORDER [None]
  - VITAMIN D DEFICIENCY [None]
